FAERS Safety Report 8596869-X (Version None)
Quarter: 2012Q3

REPORT INFORMATION
  Report Type: 
  Country: None (occurrence: None)
  Receive Date: 20120815
  Receipt Date: 20120808
  Transmission Date: 20120928
  Serious: Yes (Other)
  Sender: FDA-Public Use
  Company Number: IE-BAXTER-2012BAX014163

PATIENT
  Sex: Female
  Weight: 54.026 kg

DRUGS (5)
  1. IDEOL [Concomitant]
     Dosage: 2
     Route: 048
  2. DAPTOMYCIN [Suspect]
     Indication: INFECTION
     Route: 042
  3. PHENOBARBITAL TAB [Concomitant]
     Indication: EPILEPSY
     Route: 048
  4. SODIUM CHLORIDE 0.9% [Suspect]
     Indication: INFECTION
     Route: 042
  5. PHENYTOIN [Concomitant]
     Indication: EPILEPSY
     Route: 048

REACTIONS (4)
  - FATIGUE [None]
  - OEDEMA PERIPHERAL [None]
  - ECZEMA [None]
  - BLOOD PRESSURE INCREASED [None]
